FAERS Safety Report 21979114 (Version 1)
Quarter: 2023Q1

REPORT INFORMATION
  Report Type: Report from Study
  Country: US (occurrence: US)
  Receive Date: 20230210
  Receipt Date: 20230210
  Transmission Date: 20230418
  Serious: Yes (Life-Threatening)
  Sender: FDA-Public Use
  Company Number: US-AstraZeneca-2023A032123

PATIENT
  Age: 61 Year
  Sex: Male
  Weight: 62.1 kg

DRUGS (2)
  1. FAM-TRASTUZUMAB DERUXTECAN-NXKI [Suspect]
     Active Substance: FAM-TRASTUZUMAB DERUXTECAN-NXKI
     Indication: Neoplasm
     Dosage: TOTAL DOSE: 280 MG
     Route: 042
     Dates: start: 20230105
  2. CERALASERTIB [Suspect]
     Active Substance: CERALASERTIB
     Indication: Neoplasm
     Dosage: TOTAL DOSE: 1680 MG
     Route: 048
     Dates: start: 20230105, end: 20230111

REACTIONS (1)
  - Platelet count decreased [Not Recovered/Not Resolved]

NARRATIVE: CASE EVENT DATE: 20230119
